FAERS Safety Report 9079384 (Version 2)
Quarter: 2013Q1

REPORT INFORMATION
  Report Type: Spontaneous
  Country: GB (occurrence: GB)
  Receive Date: 20130130
  Receipt Date: 20130212
  Transmission Date: 20140127
  Serious: Yes (Life-Threatening, Hospitalization, Other)
  Sender: FDA-Public Use
  Company Number: GB-ROCHE-1184831

PATIENT
  Age: 75 Year
  Sex: Female

DRUGS (3)
  1. ALTEPLASE [Suspect]
     Indication: PULMONARY EMBOLISM
     Route: 065
  2. HEPARIN-FRACTION, SODIUM SALT [Suspect]
     Indication: ANTICOAGULANT THERAPY
     Route: 065
  3. DABIGATRAN ETEXILATE [Suspect]
     Indication: PROPHYLAXIS
     Route: 065

REACTIONS (11)
  - Adrenal insufficiency [Unknown]
  - Adrenal haemorrhage [Recovered/Resolved]
  - Sepsis [Unknown]
  - Pulmonary embolism [Unknown]
  - Renal failure acute [Unknown]
  - Cardiac arrest [Recovered/Resolved]
  - Bundle branch block right [Unknown]
  - Respiratory failure [Unknown]
  - Pneumonia [Unknown]
  - Lung consolidation [Unknown]
  - Hypotension [Unknown]
